FAERS Safety Report 24341857 (Version 1)
Quarter: 2024Q3

REPORT INFORMATION
  Report Type: Report from Study
  Country: CO (occurrence: CO)
  Receive Date: 20240920
  Receipt Date: 20240920
  Transmission Date: 20241017
  Serious: Yes (Hospitalization)
  Sender: RECORDATI
  Company Number: CO-RECORDATI RARE DISEASE INC.-2024007017

PATIENT

DRUGS (4)
  1. CYSTAGON [Suspect]
     Active Substance: CYSTEAMINE BITARTRATE
     Indication: Cystinosis
     Dosage: 150 MILLIGRAM, Q6H
     Route: 048
     Dates: start: 20240102
  2. CYSTADROPS [Suspect]
     Active Substance: CYSTEAMINE HYDROCHLORIDE
     Indication: Cystinosis
     Dosage: 2 DROP (1 DROP IN EACH EYE), Q6H (EACH EYE)
     Route: 047
     Dates: start: 20240101
  3. LEVOTHYROXINE [Concomitant]
     Active Substance: LEVOTHYROXINE\LEVOTHYROXINE SODIUM
     Indication: Hypothyroidism
     Dosage: 50 MICROGRAM/DAY
  4. FERROUS SULFATE [Concomitant]
     Active Substance: FERROUS SULFATE
     Indication: Vitamin supplementation
     Dosage: 50 MG/DAY

REACTIONS (2)
  - Swelling face [Not Recovered/Not Resolved]
  - Hypocalcaemia [Not Recovered/Not Resolved]

NARRATIVE: CASE EVENT DATE: 20240908
